FAERS Safety Report 5353358-3 (Version None)
Quarter: 2007Q2

REPORT INFORMATION
  Report Type: 
  Country: None (occurrence: None)
  Receive Date: 20070518
  Receipt Date: 20070322
  Transmission Date: 20071010
  Serious: No
  Sender: FDA-Public Use
  Company Number: TPA2007A00671

PATIENT
  Age: 23 Year
  Sex: Male
  Weight: 108.4097 kg

DRUGS (2)
  1. ROZEREM [Suspect]
     Indication: CIRCADIAN RHYTHM SLEEP DISORDER
     Dosage: 8 MG, HS, PER ORAL
     Route: 048
     Dates: start: 20070320
  2. IBUPROFEN [Concomitant]

REACTIONS (4)
  - HYPNAGOGIC HALLUCINATION [None]
  - INITIAL INSOMNIA [None]
  - NIGHTMARE [None]
  - SOMNOLENCE [None]
